FAERS Safety Report 6273056-1 (Version None)
Quarter: 2009Q3

REPORT INFORMATION
  Report Type: 
  Country: None (occurrence: None)
  Receive Date: 20090715
  Receipt Date: 20090715
  Transmission Date: 20100115
  Serious: Yes (Life-Threatening, Other)
  Sender: FDA-Public Use
  Company Number: None

PATIENT
  Age: 18 Year
  Sex: Male
  Weight: 81.6475 kg

DRUGS (2)
  1. FOCALIN XR [Suspect]
     Indication: ATTENTION DEFICIT/HYPERACTIVITY DISORDER
     Dosage: 20 MG 1 X DAILY - AM ORAL
     Route: 048
     Dates: start: 20060908, end: 20090621
  2. FOCALIN XR [Suspect]
     Indication: ATTENTION DEFICIT/HYPERACTIVITY DISORDER
     Dosage: 15 MG 1X DAILY - AM ORAL
     Route: 048
     Dates: start: 20070811, end: 20090624

REACTIONS (2)
  - GRAND MAL CONVULSION [None]
  - PRODUCT CONTAMINATION [None]
